FAERS Safety Report 5522142-X (Version None)
Quarter: 2007Q4

REPORT INFORMATION
  Report Type: 
  Country: None (occurrence: None)
  Receive Date: 20071120
  Receipt Date: 20071105
  Transmission Date: 20080405
  Serious: Yes (Life-Threatening, Hospitalization)
  Sender: FDA-Public Use
  Company Number: FR-ROCHE-531374

PATIENT
  Age: 52 Year
  Sex: Male

DRUGS (22)
  1. NAPROSYN [Suspect]
     Indication: TENDON DISORDER
     Route: 065
     Dates: start: 20070505
  2. CHAMPIX [Suspect]
     Indication: DRUG USE FOR UNKNOWN INDICATION
     Route: 065
     Dates: start: 20070505, end: 20070611
  3. BREXIN [Suspect]
     Indication: TENDON DISORDER
     Route: 065
     Dates: start: 20070531
  4. COMBIVENT [Concomitant]
  5. FORADIL [Concomitant]
  6. PNEUMOREL [Concomitant]
  7. TRINITRINE [Concomitant]
  8. SPIRIVA [Concomitant]
     Dates: start: 20070411
  9. RABEPRAZOLE SODIUM [Concomitant]
     Dates: start: 20070420
  10. KARDEGIC [Concomitant]
     Dates: start: 20070505
  11. CRESTOR [Concomitant]
     Dates: start: 20070505
  12. PRAVADUAL [Concomitant]
     Dates: start: 20070531
  13. NIQUITIN CQ [Concomitant]
  14. OXAZEPAM [Concomitant]
  15. CYCLADOL [Concomitant]
     Dates: start: 20070420
  16. VOLTAREN [Concomitant]
     Dates: start: 20070505
  17. PREDNISONE TAB [Concomitant]
     Dates: start: 20070518
  18. LAMALINE [Concomitant]
     Dates: start: 20070423
  19. ACTIQ [Concomitant]
     Dates: start: 20070505
  20. PARACETAMOL/CAFFEINE/CODEINE [Concomitant]
     Dates: start: 20070518
  21. SKENAN [Concomitant]
     Dates: start: 20070531
  22. PROPYLTHIOURACIL [Concomitant]
     Dates: start: 20070612

REACTIONS (13)
  - ANOREXIA [None]
  - CARDIAC ARREST [None]
  - DYSPNOEA [None]
  - HAEMODYNAMIC INSTABILITY [None]
  - MUSCULAR WEAKNESS [None]
  - PERICARDIAL EFFUSION [None]
  - PLEURAL EFFUSION [None]
  - POST PROCEDURAL INFECTION [None]
  - PROCEDURAL COMPLICATION [None]
  - PULMONARY OEDEMA [None]
  - RESPIRATORY DISTRESS [None]
  - TACHYCARDIA [None]
  - WEIGHT DECREASED [None]
